FAERS Safety Report 10174051 (Version 1)
Quarter: 2014Q2

REPORT INFORMATION
  Report Type: Spontaneous
  Country: US (occurrence: US)
  Receive Date: 20140515
  Receipt Date: 20140515
  Transmission Date: 20141212
  Serious: No
  Sender: FDA-Public Use
  Company Number: US-GILEAD-2014-0102401

PATIENT
  Age: 73 Year
  Sex: Female

DRUGS (6)
  1. LETAIRIS [Suspect]
     Indication: PULMONARY ARTERIAL HYPERTENSION
     Dosage: 5 MG, QD
     Route: 065
     Dates: start: 20131031
  2. TRAMADOL [Concomitant]
  3. ALBUTEROL                          /00139501/ [Concomitant]
  4. WARFARIN [Concomitant]
  5. PILOCARPINE [Concomitant]
  6. FOLIC ACID [Concomitant]

REACTIONS (1)
  - Herpes zoster [Unknown]
